FAERS Safety Report 12805547 (Version 1)
Quarter: 2016Q4

REPORT INFORMATION
  Report Type: Spontaneous
  Country: US (occurrence: US)
  Receive Date: 20161004
  Receipt Date: 20161004
  Transmission Date: 20170207
  Serious: No
  Sender: FDA-Public Use
  Company Number: US-BAYER-2016-191658

PATIENT
  Age: 63 Year
  Sex: Female
  Weight: 64.85 kg

DRUGS (1)
  1. ALEVE PM [Suspect]
     Active Substance: DIPHENHYDRAMINE HYDROCHLORIDE\NAPROXEN SODIUM
     Indication: PAIN
     Dosage: 2 DF, QD (NIGHTLY)
     Route: 048
     Dates: start: 201609

REACTIONS (1)
  - Product use issue [None]

NARRATIVE: CASE EVENT DATE: 201609
